FAERS Safety Report 7730356-3 (Version None)
Quarter: 2011Q3

REPORT INFORMATION
  Report Type: 
  Country: None (occurrence: None)
  Receive Date: 20110906
  Receipt Date: 20110608
  Transmission Date: 20111222
  Serious: No
  Sender: FDA-Public Use
  Company Number: US-GLAXOSMITHKLINE-A0930778A

PATIENT
  Age: 36 Year
  Sex: Male

DRUGS (3)
  1. SONATA [Concomitant]
  2. XANAX [Concomitant]
  3. LAMICTAL [Suspect]
     Indication: BIPOLAR DISORDER
     Dosage: 25MG TWICE PER DAY
     Route: 048
     Dates: start: 20110531, end: 20110605

REACTIONS (2)
  - RASH PRURITIC [None]
  - SCAB [None]
